FAERS Safety Report 7401071-0 (Version None)
Quarter: 2011Q2

REPORT INFORMATION
  Report Type: 
  Country: None (occurrence: None)
  Receive Date: 20110407
  Receipt Date: 20110311
  Transmission Date: 20111010
  Serious: No
  Sender: FDA-Public Use
  Company Number: US-B.I. PHARMACEUTICALS,INC./RIDGEFIELD-2010-BP-13633BP

PATIENT
  Age: 85 Year
  Sex: Female

DRUGS (12)
  1. GABAPENTIN [Concomitant]
     Indication: NEUROPATHY PERIPHERAL
     Dosage: 300 MG
  2. LEVOXYL [Concomitant]
     Indication: THYROID DISORDER
     Dosage: 75 MG
  3. IRON [Concomitant]
     Indication: PROPHYLAXIS
  4. HYDROCODONE [Concomitant]
     Indication: ARTHRITIS
  5. BISOPAR HCT [Concomitant]
     Indication: CARDIAC DISORDER
  6. DIGOXIN [Concomitant]
     Indication: ATRIAL FIBRILLATION
  7. SULFAMETH [Concomitant]
     Indication: CYSTITIS
  8. GLYBURIDE [Concomitant]
     Indication: DIABETES MELLITUS
  9. METHYLON [Concomitant]
     Indication: DIABETES MELLITUS
  10. MULTIVIT [Concomitant]
     Indication: PROPHYLAXIS
  11. PRADAXA [Suspect]
     Indication: ATRIAL FIBRILLATION
     Dosage: 150 MG
     Route: 048
     Dates: start: 20101115
  12. CRESTOR [Concomitant]
     Indication: BLOOD CHOLESTEROL INCREASED

REACTIONS (3)
  - ABDOMINAL PAIN UPPER [None]
  - ADVERSE DRUG REACTION [None]
  - ASTHENIA [None]
